FAERS Safety Report 13120516 (Version 6)
Quarter: 2019Q3

REPORT INFORMATION
  Report Type: Spontaneous
  Country: US (occurrence: US)
  Receive Date: 20170117
  Receipt Date: 20190903
  Transmission Date: 20191004
  Serious: No
  Sender: FDA-Public Use
  Company Number: US-PFIZER INC-2017015842

PATIENT
  Sex: Male

DRUGS (5)
  1. LIPITOR [Suspect]
     Active Substance: ATORVASTATIN CALCIUM
     Dosage: UNK
  2. WELLBUTRIN [Suspect]
     Active Substance: BUPROPION HYDROCHLORIDE
     Dosage: UNK
  3. CELEXA [Suspect]
     Active Substance: CITALOPRAM HYDROBROMIDE
     Dosage: UNK
  4. MEPERGAN [Suspect]
     Active Substance: MEPERIDINE HYDROCHLORIDE\PROMETHAZINE HYDROCHLORIDE
     Dosage: UNK
  5. PHENERGAN [Suspect]
     Active Substance: PROMETHAZINE HYDROCHLORIDE
     Indication: HALLUCINATION
     Dosage: UNK

REACTIONS (1)
  - Drug hypersensitivity [Unknown]
